FAERS Safety Report 8808031 (Version 1)
Quarter: 2012Q4

REPORT INFORMATION
  Report Type: 
  Country: FR (occurrence: FR)
  Receive Date: 20120925
  Receipt Date: 20120925
  Transmission Date: 20130627
  Serious: Yes (Other)
  Sender: FDA-Public Use
  Company Number: FR-ASTRAZENECA-2012SE72427

PATIENT
  Age: 27 Year
  Sex: Female

DRUGS (1)
  1. XYLOCAINE [Suspect]
     Route: 065
     Dates: start: 20120821, end: 20120821

REACTIONS (4)
  - Exposure during pregnancy [Unknown]
  - Malaise [Recovered/Resolved]
  - Somnolence [Recovered/Resolved]
  - Convulsion [Recovered/Resolved]
